FAERS Safety Report 6026131-0 (Version None)
Quarter: 2008Q4

REPORT INFORMATION
  Report Type: 
  Country: None (occurrence: None)
  Receive Date: 20081230
  Receipt Date: 20081216
  Transmission Date: 20090506
  Serious: Yes (Hospitalization)
  Sender: FDA-Public Use
  Company Number: 2008-04690

PATIENT
  Age: 62 Year
  Sex: Male

DRUGS (7)
  1. VELCADE [Suspect]
     Indication: MANTLE CELL LYMPHOMA
  2. RITUXIMAB(RITUXIMAB) INJECTION, 375MG/M2 [Suspect]
     Indication: MANTLE CELL LYMPHOMA
  3. ETOPOSIDE [Suspect]
     Indication: MANTLE CELL LYMPHOMA
  4. PREDNISONE TAB [Suspect]
     Indication: MANTLE CELL LYMPHOMA
  5. VINCRISTINE [Suspect]
     Indication: MANTLE CELL LYMPHOMA
  6. CYCLOPHOSPHAMIDE [Suspect]
     Indication: MANTLE CELL LYMPHOMA
  7. DOXORUBICIN HCL [Suspect]
     Indication: MANTLE CELL LYMPHOMA

REACTIONS (1)
  - OESOPHAGITIS [None]
